FAERS Safety Report 8699507 (Version 2)
Quarter: 2012Q4

REPORT INFORMATION
  Report Type: 
  Country: US (occurrence: US)
  Receive Date: 20120802
  Receipt Date: 20120830
  Transmission Date: 20130627
  Serious: Yes (Disabling, Other)
  Sender: FDA-Public Use
  Company Number: US-ASTRAZENECA-2012SE52225

PATIENT
  Age: 61 Year
  Sex: Male
  Weight: 86.2 kg

DRUGS (4)
  1. SEROQUEL IR [Suspect]
     Indication: BIPOLAR DISORDER
     Route: 048
  2. LAMICTAL [Concomitant]
     Indication: BIPOLAR DISORDER
     Route: 048
  3. KLONOPIN [Concomitant]
  4. COLONEX [Concomitant]
     Indication: CONSTIPATION
     Dosage: UNKNOWN DOSE DAILY
     Route: 048

REACTIONS (5)
  - Mental disorder [Unknown]
  - Constipation [Unknown]
  - Somnolence [Unknown]
  - Drug ineffective [Unknown]
  - Bipolar disorder [Unknown]
